FAERS Safety Report 14593430 (Version 1)
Quarter: 2018Q1

REPORT INFORMATION
  Report Type: Report from Study
  Country: None (occurrence: ZA)
  Receive Date: 20180302
  Receipt Date: 20180302
  Transmission Date: 20180509
  Serious: Yes (Death)
  Sender: FDA-Public Use
  Company Number: ZA-ABBVIE-18P-143-2273312-00

PATIENT
  Age: 54 Year
  Sex: Male
  Weight: 101 kg

DRUGS (12)
  1. FUROZAMIDE [Concomitant]
     Indication: SWELLING
     Dates: start: 20161223
  2. DARUNAVIR [Concomitant]
     Active Substance: DARUNAVIR
     Indication: HIV INFECTION
     Route: 048
     Dates: start: 20160425
  3. PHARMAPRESS [Concomitant]
     Indication: HYPERTENSION
     Dates: start: 201107
  4. TENOPRESS [Concomitant]
     Indication: HYPERTENSION
     Dates: start: 201411
  5. SLOW K [Concomitant]
     Active Substance: POTASSIUM CHLORIDE
     Indication: MUSCLE SPASMS
  6. PARACETAMOL [Concomitant]
     Active Substance: ACETAMINOPHEN
     Indication: PAIN
     Dates: start: 20140608
  7. DICLOFENAC [Concomitant]
     Active Substance: DICLOFENAC
     Indication: PAIN
     Dates: start: 20170110
  8. RITONAVIR. [Suspect]
     Active Substance: RITONAVIR
     Indication: HIV INFECTION
     Route: 048
     Dates: start: 20060425
  9. SLOW K [Concomitant]
     Active Substance: POTASSIUM CHLORIDE
     Indication: MUSCLE TWITCHING
     Dates: start: 20161223
  10. PANADO [Concomitant]
     Active Substance: ACETAMINOPHEN
     Indication: PAIN
     Dates: start: 20170905
  11. MAXOLON [Concomitant]
     Active Substance: METOCLOPRAMIDE HYDROCHLORIDE
     Indication: VOMITING
     Dates: start: 20170905
  12. TRUVADA [Concomitant]
     Active Substance: EMTRICITABINE\TENOFOVIR DISOPROXIL FUMARATE
     Indication: PRODUCT USED FOR UNKNOWN INDICATION

REACTIONS (1)
  - Vomiting [Fatal]

NARRATIVE: CASE EVENT DATE: 20180102
